FAERS Safety Report 14234107 (Version 1)
Quarter: 2017Q4

REPORT INFORMATION
  Report Type: Spontaneous
  Country: FR (occurrence: FR)
  Receive Date: 20171128
  Receipt Date: 20171128
  Transmission Date: 20180321
  Serious: Yes (Other)
  Sender: FDA-Public Use
  Company Number: FR-MERCK KGAA-2036207

PATIENT
  Age: 85 Year
  Sex: Female

DRUGS (11)
  1. MIANSERINE BIOGARAN [Concomitant]
     Active Substance: MIANSERIN HYDROCHLORIDE
     Route: 048
  2. NOVOTHYROX [Suspect]
     Active Substance: LEVOTHYROXINE SODIUM
     Route: 048
  3. PARACETAMOL [Concomitant]
     Active Substance: ACETAMINOPHEN
     Route: 048
  4. ZOPICLONE [Concomitant]
     Active Substance: ZOPICLONE
     Route: 048
  5. TEMESTA (LORAZEPAM) [Concomitant]
     Active Substance: LORAZEPAM
     Route: 048
  6. FLECAINE [Concomitant]
     Active Substance: FLECAINIDE
     Route: 048
  7. ETIOVEN [Concomitant]
     Active Substance: NAFTAZONE
     Route: 048
  8. EZETROL [Concomitant]
     Active Substance: EZETIMIBE
     Route: 048
  9. NOVOTHYROX [Suspect]
     Active Substance: LEVOTHYROXINE SODIUM
     Indication: THYROIDECTOMY
     Route: 048
     Dates: start: 201705
  10. KENZEN [Concomitant]
     Active Substance: CANDESARTAN
     Route: 048
  11. LIVIAL [Concomitant]
     Active Substance: TIBOLONE
     Route: 048

REACTIONS (3)
  - Insomnia [Not Recovered/Not Resolved]
  - Diarrhoea [Not Recovered/Not Resolved]
  - Balance disorder [Not Recovered/Not Resolved]

NARRATIVE: CASE EVENT DATE: 201705
